FAERS Safety Report 6150814-5 (Version None)
Quarter: 2009Q2

REPORT INFORMATION
  Report Type: 
  Country: None (occurrence: None)
  Receive Date: 20090408
  Receipt Date: 20090320
  Transmission Date: 20091009
  Serious: Yes (Hospitalization)
  Sender: FDA-Public Use
  Company Number: 2009AL001697

PATIENT
  Age: 77 Year
  Sex: Female

DRUGS (9)
  1. DIGOXIN [Suspect]
     Indication: ATRIAL FIBRILLATION
     Dosage: 0.125MG, DAILY, PO
     Route: 048
     Dates: start: 20010716
  2. TOPROL-XL [Concomitant]
  3. NORVASC [Concomitant]
  4. AVAPRO [Concomitant]
  5. PREVACID [Concomitant]
  6. COUMADIN [Concomitant]
  7. LASIX [Concomitant]
  8. LISINOPRIL [Concomitant]
  9. GLUCOVANCE [Concomitant]

REACTIONS (9)
  - APHASIA [None]
  - ATRIAL FIBRILLATION [None]
  - CACHEXIA [None]
  - CEREBROVASCULAR ACCIDENT [None]
  - CONFUSIONAL STATE [None]
  - DISORIENTATION [None]
  - ECONOMIC PROBLEM [None]
  - EMOTIONAL DISORDER [None]
  - HYPERTENSION [None]
